FAERS Safety Report 6935683-5 (Version None)
Quarter: 2010Q3

REPORT INFORMATION
  Report Type: 
  Country: None (occurrence: None)
  Receive Date: 20100817
  Receipt Date: 20100803
  Transmission Date: 20110219
  Serious: Yes (Hospitalization)
  Sender: FDA-Public Use
  Company Number: TCI2010A02931

PATIENT
  Age: 75 Year
  Sex: Female

DRUGS (9)
  1. NESINA TABLETS 25MG (SYR-322) [Suspect]
     Indication: DIABETES MELLITUS
     Dosage: 25 MG (25 MG,1 IN 1 D) PER ORAL
     Route: 048
     Dates: start: 20100710, end: 20100720
  2. ACTOS [Suspect]
     Indication: DIABETES MELLITUS
     Dosage: 15 MG (15 MG,1 D) PER ORAL ; 30 MG (30 MG,1 D) PER ORAL
     Route: 048
     Dates: start: 20041214, end: 20050414
  3. ACTOS [Suspect]
     Indication: DIABETES MELLITUS
     Dosage: 15 MG (15 MG,1 D) PER ORAL ; 30 MG (30 MG,1 D) PER ORAL
     Route: 048
     Dates: start: 20050415, end: 20100709
  4. AMARYL [Suspect]
     Indication: DIABETES MELLITUS
     Dosage: 1 MG (1 MG,1 D ) PER ORAL ; 1-2 MG (1 D) PER ORAL
     Route: 048
     Dates: start: 20060723, end: 20080411
  5. AMARYL [Suspect]
     Indication: DIABETES MELLITUS
     Dosage: 1 MG (1 MG,1 D ) PER ORAL ; 1-2 MG (1 D) PER ORAL
     Route: 048
     Dates: end: 20100709
  6. AMARYL [Suspect]
     Indication: DIABETES MELLITUS
     Dosage: 1 MG (1 MG,1 D ) PER ORAL ; 1-2 MG (1 D) PER ORAL
     Route: 048
     Dates: start: 20080412
  7. LIPITOR [Concomitant]
  8. ALPRAZOLAM [Concomitant]
  9. GLYBURIDE [Concomitant]

REACTIONS (4)
  - DIABETES MELLITUS INADEQUATE CONTROL [None]
  - ERYTHEMA [None]
  - RASH [None]
  - WEIGHT INCREASED [None]
